FAERS Safety Report 11130578 (Version 2)
Quarter: 2015Q3

REPORT INFORMATION
  Report Type: Spontaneous
  Country: FR (occurrence: FR)
  Receive Date: 20150522
  Receipt Date: 20150710
  Transmission Date: 20151125
  Serious: Yes (Hospitalization)
  Sender: FDA-Public Use
  Company Number: FR-009507513-1505FRA007034

PATIENT
  Age: 49 Year
  Sex: Female
  Weight: 88 kg

DRUGS (4)
  1. OMEPRAZOLE. [Concomitant]
     Active Substance: OMEPRAZOLE
     Dosage: 1 IN THE MORNING, STRENGTH: 20 (UNIT NOT PROVIDED)
  2. NEXPLANON [Suspect]
     Active Substance: ETONOGESTREL
     Indication: CONTRACEPTION
     Dosage: UNK
     Route: 058
     Dates: start: 20140827, end: 20150513
  3. TAVANIC [Concomitant]
     Active Substance: LEVOFLOXACIN
     Dosage: 1 IN THE MORNING
  4. TIORFAN [Concomitant]
     Active Substance: RACECADOTRIL
     Dosage: 1 IN THE MORNING AND 1DF IN THE EVENING, STRENGTH: 100 (UNIT NOT PROVIDED)

REACTIONS (8)
  - Hiatus hernia [Unknown]
  - Dyspnoea exertional [Unknown]
  - Fibrin D dimer increased [Recovered/Resolved]
  - Insomnia [Unknown]
  - Chest pain [Unknown]
  - Pleural effusion [Recovered/Resolved]
  - Pleural fibrosis [Unknown]
  - Atelectasis [Unknown]

NARRATIVE: CASE EVENT DATE: 201502
